FAERS Safety Report 6401022-1 (Version None)
Quarter: 2009Q4

REPORT INFORMATION
  Report Type: 
  Country: None (occurrence: None)
  Receive Date: 20091013
  Receipt Date: 20091013
  Transmission Date: 20100525
  Serious: No
  Sender: FDA-Public Use
  Company Number: None

PATIENT
  Sex: Female
  Weight: 93.4 kg

DRUGS (2)
  1. CYCLOPHOSPHAMIDE [Suspect]
     Dosage: 1332 MG
  2. DOXORUBICIN HCL [Suspect]
     Dosage: 133 MG

REACTIONS (4)
  - DIZZINESS [None]
  - FATIGUE [None]
  - HYPOKALAEMIA [None]
  - MUCOSAL INFLAMMATION [None]
